FAERS Safety Report 5710354-1 (Version None)
Quarter: 2008Q2

REPORT INFORMATION
  Report Type: 
  Country: None (occurrence: None)
  Receive Date: 20080418
  Receipt Date: 20080408
  Transmission Date: 20081010
  Serious: Yes (Other)
  Sender: FDA-Public Use
  Company Number: BR-PFIZER INC-2008031616

PATIENT
  Sex: Female

DRUGS (1)
  1. FELDENE [Suspect]
     Route: 048

REACTIONS (2)
  - FALL [None]
  - MUSCULOSKELETAL DISORDER [None]
